FAERS Safety Report 13817339 (Version 1)
Quarter: 2017Q3

REPORT INFORMATION
  Report Type: Report from Study
  Country: CA (occurrence: CA)
  Receive Date: 20170731
  Receipt Date: 20170731
  Transmission Date: 20171127
  Serious: Yes (Hospitalization, Other)
  Sender: FDA-Public Use
  Company Number: CA-BAYER-2017-026821

PATIENT
  Age: 45 Year
  Sex: Female

DRUGS (2)
  1. TAMIFLU [Suspect]
     Active Substance: OSELTAMIVIR PHOSPHATE
     Dosage: UNK
     Dates: start: 20170208
  2. ADEMPAS [Suspect]
     Active Substance: RIOCIGUAT
     Indication: PULMONARY ARTERIAL HYPERTENSION
     Dosage: 2.5 MG, TID
     Dates: start: 20160420

REACTIONS (5)
  - Influenza [None]
  - Chest pain [Not Recovered/Not Resolved]
  - Lung infection [None]
  - Hospitalisation [Unknown]
  - Vomiting [None]

NARRATIVE: CASE EVENT DATE: 20170208
